FAERS Safety Report 6851061-1 (Version None)
Quarter: 2010Q3

REPORT INFORMATION
  Report Type: 
  Country: None (occurrence: None)
  Receive Date: 20100716
  Receipt Date: 20071030
  Transmission Date: 20110219
  Serious: No
  Sender: FDA-Public Use
  Company Number: US-PFIZER INC-2007092067

PATIENT
  Sex: Male
  Weight: 59.1 kg

DRUGS (1)
  1. CHANTIX [Suspect]
     Indication: SMOKING CESSATION THERAPY
     Dates: start: 20071029

REACTIONS (3)
  - ASTHENIA [None]
  - BODY HEIGHT DECREASED [None]
  - INCORRECT DOSE ADMINISTERED [None]
